FAERS Safety Report 7953596-7 (Version None)
Quarter: 2011Q4

REPORT INFORMATION
  Report Type: 
  Country: None (occurrence: None)
  Receive Date: 20111202
  Receipt Date: 20111124
  Transmission Date: 20120403
  Serious: Yes (Other)
  Sender: FDA-Public Use
  Company Number: DE-B.I. PHARMACEUTICALS,INC./RIDGEFIELD-2011-DE-06424DE

PATIENT
  Sex: Female
  Weight: 65 kg

DRUGS (4)
  1. RAMIPRIL [Concomitant]
     Indication: HYPERTENSION
     Dosage: 1 ANZ
  2. L-THYROXIN 75 [Concomitant]
     Indication: HYPERTHYROIDISM
     Dosage: 1 ANZ
  3. PRADAXA [Suspect]
  4. PRADAXA [Suspect]
     Indication: ATRIAL FIBRILLATION
     Dosage: 220 MG
     Dates: start: 20111020, end: 20111110

REACTIONS (4)
  - CEREBROVASCULAR ACCIDENT [None]
  - HEMIPARESIS [None]
  - ISCHAEMIC STROKE [None]
  - APHASIA [None]
